FAERS Safety Report 8530165-1 (Version None)
Quarter: 2012Q3

REPORT INFORMATION
  Report Type: 
  Country: None (occurrence: None)
  Receive Date: 20120723
  Receipt Date: 20120717
  Transmission Date: 20120928
  Serious: Yes (Other)
  Sender: FDA-Public Use
  Company Number: US-PFIZER INC-2012172809

PATIENT
  Sex: Female
  Weight: 136 kg

DRUGS (7)
  1. LEVOTHYROXINE SODIUM [Concomitant]
     Indication: THYROID DISORDER
     Dosage: 100 UG, DAILY
  2. POTASSIUM [Concomitant]
     Indication: OEDEMA
     Dosage: UNK, DAILY
  3. LASIX [Concomitant]
     Indication: OEDEMA
     Dosage: 40 MG, DAILY
  4. LISINOPRIL [Concomitant]
     Indication: HYPERTENSION
     Dosage: 25 MG, DAILY
  5. PREDNISONE [Concomitant]
     Indication: FIBROMYALGIA
     Dosage: UNK, DAILY
  6. LYRICA [Suspect]
     Indication: NEURALGIA
     Dosage: 50 MG, DAILY
     Dates: start: 20120501, end: 20120615
  7. CYMBALTA [Suspect]
     Indication: NERVE INJURY
     Dosage: UNK, DAILY
     Dates: start: 20120601, end: 20120601

REACTIONS (4)
  - WEIGHT INCREASED [None]
  - DRUG INEFFECTIVE [None]
  - RENAL PAIN [None]
  - BLOOD URINE PRESENT [None]
